FAERS Safety Report 22062693 (Version 1)
Quarter: 2023Q1

REPORT INFORMATION
  Report Type: Spontaneous
  Country: ES (occurrence: ES)
  Receive Date: 20230306
  Receipt Date: 20230306
  Transmission Date: 20230418
  Serious: Yes (Other)
  Sender: FDA-Public Use
  Company Number: ES-DENTSPLY-2023SCDP000065

PATIENT
  Age: 47 Year
  Sex: Female

DRUGS (1)
  1. MEPIVACAINE HYDROCHLORIDE [Suspect]
     Active Substance: MEPIVACAINE HYDROCHLORIDE
     Indication: Dental local anaesthesia
     Dosage: 2 DOSAGE FORM OF MEPIVACAINE NORMOGEN 30 MG/ML SOLUTION FOR INJECTION EFG
     Route: 004
     Dates: start: 20221122, end: 20221122

REACTIONS (2)
  - Palpitations [Recovered/Resolved]
  - Dizziness [Recovered/Resolved]

NARRATIVE: CASE EVENT DATE: 20221122
